FAERS Safety Report 4654411-X (Version None)
Quarter: 2005Q2

REPORT INFORMATION
  Report Type: 
  Country: None (occurrence: None)
  Receive Date: 20050404
  Receipt Date: 20050107
  Transmission Date: 20051028
  Serious: No
  Sender: FDA-Public Use
  Company Number: USA050187821

PATIENT
  Age: 39 Year
  Sex: Female

DRUGS (4)
  1. CYMBALTA [Suspect]
     Indication: DEPRESSION
     Dosage: 30 MG DAY
     Dates: start: 20041228
  2. AMBIEN [Concomitant]
  3. TENORMIN (ATENOLOL EG) [Concomitant]
  4. TRAZODONE [Concomitant]

REACTIONS (1)
  - BLEPHAROSPASM [None]
